FAERS Safety Report 10408501 (Version 1)
Quarter: 2014Q3

REPORT INFORMATION
  Report Type: Spontaneous
  Country: US (occurrence: None)
  Receive Date: 20140822
  Receipt Date: 20140822
  Transmission Date: 20150326
  Serious: Yes (Life-Threatening)
  Sender: FDA-Public Use
  Company Number: None

PATIENT
  Age: 63 Year
  Sex: Female
  Weight: 74.84 kg

DRUGS (1)
  1. GENERIC CYMBALTA 60 MG LUPIN PHARM [Suspect]
     Active Substance: DULOXETINE HYDROCHLORIDE

REACTIONS (8)
  - Palpitations [None]
  - Mental disorder [None]
  - Anxiety [None]
  - Thinking abnormal [None]
  - Economic problem [None]
  - Depression [None]
  - Product substitution issue [None]
  - Panic attack [None]

NARRATIVE: CASE EVENT DATE: 20140820
